FAERS Safety Report 9188135 (Version 2)
Quarter: 2013Q2

REPORT INFORMATION
  Report Type: Spontaneous
  Country: CH (occurrence: CH)
  Receive Date: 20130325
  Receipt Date: 20130510
  Transmission Date: 20140414
  Serious: Yes (Other)
  Sender: FDA-Public Use
  Company Number: PHHY2013CH026560

PATIENT
  Age: 48 Year
  Sex: Male

DRUGS (8)
  1. BOSENTAN [Suspect]
     Indication: PULMONARY ARTERIAL HYPERTENSION
  2. RIFAMPICIN [Interacting]
     Indication: STAPHYLOCOCCAL INFECTION
  3. RIFAMPICIN [Interacting]
     Indication: ENDOCARDITIS
  4. PERINDOPRIL [Concomitant]
     Indication: PULMONARY ARTERIAL HYPERTENSION
  5. DIGOXIN [Concomitant]
  6. TORSEMIDE [Concomitant]
     Indication: PULMONARY ARTERIAL HYPERTENSION
  7. CIPROFLOXACIN [Concomitant]
     Indication: STAPHYLOCOCCAL INFECTION
  8. CIPROFLOXACIN [Concomitant]
     Indication: ENDOCARDITIS

REACTIONS (4)
  - Pulmonary arterial pressure increased [Unknown]
  - N-terminal prohormone brain natriuretic peptide increased [Unknown]
  - Dyspnoea [Unknown]
  - Drug interaction [Unknown]
